FAERS Safety Report 25663192 (Version 1)
Quarter: 2025Q3

REPORT INFORMATION
  Report Type: Spontaneous
  Country: US (occurrence: US)
  Receive Date: 20250811
  Receipt Date: 20250811
  Transmission Date: 20251021
  Serious: Yes (Hospitalization, Other)
  Sender: NOVO NORDISK
  Company Number: US-NOVOPROD-1494109

PATIENT
  Age: 67 Year
  Sex: Female

DRUGS (2)
  1. FIASP [Suspect]
     Active Substance: INSULIN ASPART
     Indication: Blood glucose increased
  2. FIASP [Suspect]
     Active Substance: INSULIN ASPART
     Indication: Glucose tolerance impaired
     Dosage: 6 IU, TID
     Route: 058
     Dates: start: 2024

REACTIONS (2)
  - Peripheral swelling [Unknown]
  - Heart valve incompetence [Not Recovered/Not Resolved]

NARRATIVE: CASE EVENT DATE: 20250601
